FAERS Safety Report 6029519-7 (Version None)
Quarter: 2009Q1

REPORT INFORMATION
  Report Type: 
  Country: None (occurrence: None)
  Receive Date: 20090107
  Receipt Date: 20081229
  Transmission Date: 20090719
  Serious: Yes (Other)
  Sender: FDA-Public Use
  Company Number: JP-RANBAXY-2008RR-20259

PATIENT
  Age: 78 Year
  Sex: Male

DRUGS (5)
  1. FUROSEMIDE [Suspect]
     Dosage: 8 MG, QD
     Route: 048
  2. LASIX [Suspect]
     Dosage: 40 MG, QD
  3. MICARDIS [Concomitant]
  4. ADALATE L [Concomitant]
  5. WARFARIN SODIUM [Concomitant]

REACTIONS (1)
  - PEMPHIGOID [None]
